FAERS Safety Report 14842512 (Version 1)
Quarter: 2018Q2

REPORT INFORMATION
  Report Type: Spontaneous
  Country: US (occurrence: US)
  Receive Date: 20180503
  Receipt Date: 20180503
  Transmission Date: 20180711
  Serious: No
  Sender: FDA-Public Use
  Company Number: US-ROMARKLABS-2018-US-000003

PATIENT
  Age: 12 Year
  Sex: Male

DRUGS (1)
  1. ALINIA [Suspect]
     Active Substance: NITAZOXANIDE
     Indication: COUGH
     Dosage: 3 TABLETS ONCE IN 15 MIN
     Route: 048
     Dates: start: 20180110, end: 20180110

REACTIONS (3)
  - Accidental overdose [Recovered/Resolved]
  - Chromaturia [Unknown]
  - Accidental exposure to product by child [Recovered/Resolved]

NARRATIVE: CASE EVENT DATE: 20180110
